FAERS Safety Report 8669363 (Version 2)
Quarter: 2013Q4

REPORT INFORMATION
  Report Type: Spontaneous
  Country: US (occurrence: US)
  Receive Date: 20120717
  Receipt Date: 20131101
  Transmission Date: 20140711
  Serious: No
  Sender: FDA-Public Use
  Company Number: US-009507513-1207USA002754

PATIENT
  Sex: Male

DRUGS (1)
  1. PEGINTRON [Suspect]
     Indication: EOSINOPHILIA
     Dosage: 80 MICROGRAM, QW
     Dates: start: 201201, end: 2012

REACTIONS (2)
  - Adverse event [Unknown]
  - Off label use [Recovered/Resolved]
